FAERS Safety Report 9170560 (Version 2)
Quarter: 2013Q1

REPORT INFORMATION
  Report Type: Spontaneous
  Country: IQ (occurrence: None)
  Receive Date: 20130312
  Receipt Date: 20130325
  Transmission Date: 20140127
  Serious: Yes (Hospitalization)
  Sender: FDA-Public Use
  Company Number: USA/IAQ/13/0028380

PATIENT
  Age: 65 Year
  Sex: Female

DRUGS (4)
  1. AMLODIPINE BESYLATE [Suspect]
     Indication: BLOOD PRESSURE
  2. FUROSEMIDE (FUROSEMIDE) [Suspect]
     Indication: BLOOD PRESSURE
  3. DICLOFENAC (DICLOFENAC) [Suspect]
     Indication: PRODUCT USED FOR UNKNOWN INDICATION
  4. CIPROFLOXACIN (CIPROFLOXACIN) [Concomitant]

REACTIONS (1)
  - Stevens-Johnson syndrome [None]
